FAERS Safety Report 19455436 (Version 2)
Quarter: 2021Q3

REPORT INFORMATION
  Report Type: Spontaneous
  Country: US (occurrence: US)
  Receive Date: 20210623
  Receipt Date: 20210710
  Transmission Date: 20211014
  Serious: Yes (Death)
  Sender: FDA-Public Use
  Company Number: US-ROCHE-2855918

PATIENT
  Age: 63 Year
  Sex: Female
  Weight: 52.66 kg

DRUGS (1)
  1. PERJETA [Suspect]
     Active Substance: PERTUZUMAB
     Indication: PRODUCT USED FOR UNKNOWN INDICATION
     Dosage: PERJETA SDV 420MG/14ML
     Route: 042
     Dates: start: 202106

REACTIONS (2)
  - Metastases to liver [Fatal]
  - Breast cancer [Fatal]

NARRATIVE: CASE EVENT DATE: 20210614
